FAERS Safety Report 20137202 (Version 2)
Quarter: 2021Q4

REPORT INFORMATION
  Report Type: Spontaneous
  Country: US (occurrence: US)
  Receive Date: 20211201
  Receipt Date: 20211213
  Transmission Date: 20220303
  Serious: Yes (Life-Threatening, Hospitalization)
  Sender: FDA-Public Use
  Company Number: US-TEVA-2021-US-1982081

PATIENT
  Age: 6 Decade
  Sex: Female

DRUGS (11)
  1. NOREPINEPHRINE [Suspect]
     Active Substance: NOREPINEPHRINE
     Indication: Circulatory collapse
     Dosage: 432 UG/KG DAILY;
     Route: 065
  2. LIDOCAINE [Suspect]
     Active Substance: LIDOCAINE
     Indication: Local anaesthesia
     Dosage: 2ML
     Route: 061
  3. BUPIVACAINE [Suspect]
     Active Substance: BUPIVACAINE
     Indication: Local anaesthesia
     Dosage: 8ML
     Route: 008
  4. DOBUTAMINE [Suspect]
     Active Substance: DOBUTAMINE HYDROCHLORIDE
     Indication: Circulatory collapse
     Dosage: 14400 UG/KG DAILY;
     Route: 065
  5. VASOPRESSIN [Suspect]
     Active Substance: VASOPRESSIN
     Indication: Circulatory collapse
     Dosage: 57.6 IU (INTERNATIONAL UNIT) DAILY;
     Route: 065
  6. LIDOCAINE [Suspect]
     Active Substance: LIDOCAINE
     Indication: Local anaesthesia
     Dosage: 200MG A LOCAL INFILTRATION OF 1% LIDOCAINE 20ML (200MG) INJECTION
     Route: 050
  7. LIDOCAINE [Suspect]
     Active Substance: LIDOCAINE
     Dosage: LIDOCAINE WAS GIVEN WITH FREQUENT ASPIRATION AND INCREMENTAL INJECTION
     Route: 050
  8. LIDOCAINE [Suspect]
     Active Substance: LIDOCAINE
     Route: 008
  9. EPINEPHRINE [Concomitant]
     Active Substance: EPINEPHRINE
     Indication: Product used for unknown indication
     Dosage: ALONG WITH LIDOCAINE
     Route: 008
  10. EPINEPHRINE [Concomitant]
     Active Substance: EPINEPHRINE
     Indication: Circulatory collapse
     Dosage: 288 UG/KG DAILY;
     Route: 065
  11. IOHEXOL [Concomitant]
     Active Substance: IOHEXOL
     Indication: Product used for unknown indication
     Dosage: 1 ML OF 180 MG IODINE/ M
     Route: 008

REACTIONS (5)
  - Local anaesthetic systemic toxicity [Recovered/Resolved]
  - Respiratory failure [Recovered/Resolved]
  - Bundle branch block left [Recovered/Resolved]
  - Circulatory collapse [Recovered/Resolved]
  - Drug ineffective [Unknown]
